APPROVED DRUG PRODUCT: AMITRIPTYLINE HYDROCHLORIDE
Active Ingredient: AMITRIPTYLINE HYDROCHLORIDE
Strength: 100MG
Dosage Form/Route: TABLET;ORAL
Application: A088634 | Product #001
Applicant: WATSON LABORATORIES INC
Approved: Mar 2, 1984 | RLD: No | RS: No | Type: DISCN